FAERS Safety Report 6336803-6 (Version None)
Quarter: 2009Q3

REPORT INFORMATION
  Report Type: 
  Country: None (occurrence: None)
  Receive Date: 20090901
  Receipt Date: 20090826
  Transmission Date: 20100115
  Serious: No
  Sender: FDA-Public Use
  Company Number: US-B.I. PHARMACEUTICALS,INC./RIDGEFIELD-2009-BP-01364BP

PATIENT
  Sex: Female
  Weight: 50 kg

DRUGS (9)
  1. SPIRIVA [Suspect]
     Indication: CHRONIC OBSTRUCTIVE PULMONARY DISEASE
     Dosage: 18 MCG
     Route: 055
     Dates: start: 20081231
  2. SPIRIVA [Suspect]
     Indication: DYSPNOEA
  3. ADVAIR HFA [Concomitant]
     Indication: CHRONIC OBSTRUCTIVE PULMONARY DISEASE
     Route: 055
  4. ACTONEL [Concomitant]
     Indication: OSTEOPOROSIS
     Route: 048
     Dates: start: 20030101
  5. ASPIRIN [Concomitant]
     Indication: PROPHYLAXIS
     Dosage: 81 MG
     Route: 048
  6. MULTI-VITAMINS [Concomitant]
     Indication: PROPHYLAXIS
     Route: 048
  7. MIRAPEX [Concomitant]
  8. COMP THYROID [Concomitant]
  9. PROVENTIL-HFA [Concomitant]

REACTIONS (2)
  - DYSPNOEA [None]
  - SINUS CONGESTION [None]
